FAERS Safety Report 23180910 (Version 1)
Quarter: 2023Q4

REPORT INFORMATION
  Report Type: Spontaneous
  Country: CO (occurrence: None)
  Receive Date: 20231114
  Receipt Date: 20231114
  Transmission Date: 20240109
  Serious: Yes (Hospitalization)
  Sender: FDA-Public Use
  Company Number: CO-ROCHE-3450150

PATIENT
  Age: 35 Year
  Sex: Female

DRUGS (2)
  1. MABTHERA [Suspect]
     Active Substance: RITUXIMAB
     Indication: Neuromyelitis optica spectrum disorder
     Dosage: MOST RECENT DOSE- APR/2023
     Route: 041
     Dates: start: 201802, end: 202304
  2. MABTHERA [Suspect]
     Active Substance: RITUXIMAB
     Indication: Multiple sclerosis

REACTIONS (7)
  - Ear infection [Recovering/Resolving]
  - Chronic sinusitis [Recovering/Resolving]
  - Off label use [Unknown]
  - Ill-defined disorder [Unknown]
  - Asthenia [Unknown]
  - Mouth ulceration [Unknown]
  - Neutrophil count decreased [Recovering/Resolving]

NARRATIVE: CASE EVENT DATE: 20180201
